FAERS Safety Report 9393090 (Version 5)
Quarter: 2013Q4

REPORT INFORMATION
  Report Type: Spontaneous
  Country: US (occurrence: US)
  Receive Date: 20130710
  Receipt Date: 20131224
  Transmission Date: 20140711
  Serious: Yes (Hospitalization, Other)
  Sender: FDA-Public Use
  Company Number: US-JNJFOC-20130618859

PATIENT
  Age: 88 Year
  Sex: Male
  Weight: 79.1 kg

DRUGS (15)
  1. ZYTIGA [Suspect]
     Indication: PROSTATE CANCER METASTATIC
     Dosage: 250 MG X 4
     Route: 048
     Dates: start: 20120717, end: 20120817
  2. LOVENOX [Suspect]
     Indication: THROMBOSIS PROPHYLAXIS
     Route: 058
     Dates: start: 20120821, end: 20120822
  3. FINASTERIDE [Concomitant]
     Route: 048
  4. CALCIUM WITH VITAMIN  D [Concomitant]
     Dosage: STARTED PRIOR TO ADMISSION
     Route: 065
  5. CENTRUM MULTIVITAMINS [Concomitant]
     Dosage: STARTED PRIOR TO ADMISSION
     Route: 048
  6. FLOMAX [Concomitant]
     Dosage: STARTED PRIOR TO ADMISSION
     Route: 048
  7. MOM [Concomitant]
     Dosage: STARTED PRIOR TO ADMISSION
     Route: 048
  8. NORCO [Concomitant]
     Indication: PAIN
     Dosage: STARTED PRIOR TO ADMISSION, EVERY 6 HOURS AS NECESSARY  FOR PAIN
     Route: 048
     Dates: start: 20120817
  9. PILOCARPINE [Concomitant]
     Dosage: STARTED PRIOR TO ADMISSION, EVERY 6 HOURS AS NECESSARY  FOR PAIN
     Route: 048
  10. SURFAK STOOL SOFTENER [Concomitant]
     Dosage: STARTED PRIOR TO ADMISSION
     Route: 048
  11. ZITHROMAX [Concomitant]
     Dosage: STARTED PRIOR TO ADMISSION
     Route: 048
     Dates: start: 20120812, end: 201208
  12. ZITHROMAX [Concomitant]
     Dosage: STARTED PRIOR TO ADMISSION, ONE DOSE EVERY DAY X 4 DAYS
     Route: 048
     Dates: start: 201208, end: 20120816
  13. ZOFRAN [Concomitant]
     Dosage: STARTED PRIOR TO ADMISSION,
     Route: 065
  14. ZOLOFT [Concomitant]
     Dosage: STARTED PRIOR TO ADMISSION,
     Route: 048
  15. PREDNISONE [Concomitant]
     Dosage: STARTED PRIOR TO ADMISSION,
     Route: 048

REACTIONS (2)
  - Pneumothorax [Unknown]
  - Thrombocytopenia [Recovered/Resolved]
